FAERS Safety Report 6278263-X (Version None)
Quarter: 2009Q3

REPORT INFORMATION
  Report Type: 
  Country: None (occurrence: None)
  Receive Date: 20090720
  Receipt Date: 20090720
  Transmission Date: 20100115
  Serious: Yes (Life-Threatening)
  Sender: FDA-Public Use
  Company Number: None

PATIENT
  Age: 55 Year
  Sex: Female
  Weight: 95.2554 kg

DRUGS (2)
  1. LITHIUM CARBONATE [Suspect]
     Indication: BIPOLAR DISORDER
     Dosage: 300 MGS 1 CAP 4X DAY PO
     Route: 048
     Dates: start: 19881030, end: 20090630
  2. LITHIUM CARBONATE [Concomitant]

REACTIONS (5)
  - ANAEMIA [None]
  - HIGH TURNOVER OSTEOPATHY [None]
  - MACULAR DEGENERATION [None]
  - RENAL DISORDER [None]
  - RENAL FAILURE CHRONIC [None]
